FAERS Safety Report 11051955 (Version 1)
Quarter: 2015Q2

REPORT INFORMATION
  Report Type: Spontaneous
  Country: RO (occurrence: RO)
  Receive Date: 20150421
  Receipt Date: 20150421
  Transmission Date: 20150821
  Serious: Yes (Hospitalization, Other)
  Sender: FDA-Public Use
  Company Number: RO-ABBVIE-15K-135-1377315-00

PATIENT
  Sex: Female
  Weight: 50 kg

DRUGS (1)
  1. HUMIRA [Suspect]
     Active Substance: ADALIMUMAB
     Indication: ANKYLOSING SPONDYLITIS
     Route: 058
     Dates: start: 201205, end: 201502

REACTIONS (28)
  - Hyponatraemia [Unknown]
  - Back pain [Unknown]
  - Splenic abscess [Unknown]
  - Hypocalcaemia [Unknown]
  - Interstitial lung disease [Unknown]
  - Anaemia [Unknown]
  - Hypoproteinaemia [Unknown]
  - Abdominal pain lower [Unknown]
  - Splenomegaly [Unknown]
  - Acute kidney injury [Unknown]
  - Dehydration [Unknown]
  - Hepatocellular injury [Unknown]
  - Pleurisy [Unknown]
  - Tongue discolouration [Unknown]
  - Pulmonary tuberculosis [Recovering/Resolving]
  - Ankylosing spondylitis [Unknown]
  - Ascites [Unknown]
  - Lymph node tuberculosis [Recovering/Resolving]
  - Pericarditis tuberculous [Recovering/Resolving]
  - Pallor [Unknown]
  - Pyelonephritis [Unknown]
  - Pericarditis [Unknown]
  - Dyskinesia [Unknown]
  - Oral candidiasis [Unknown]
  - Extrapulmonary tuberculosis [Recovering/Resolving]
  - Nephrolithiasis [Unknown]
  - Urosepsis [Unknown]
  - Hypophagia [Unknown]

NARRATIVE: CASE EVENT DATE: 2015
